FAERS Safety Report 14714339 (Version 2)
Quarter: 2018Q2

REPORT INFORMATION
  Report Type: Report from Study
  Country: CO (occurrence: CO)
  Receive Date: 20180404
  Receipt Date: 20180629
  Transmission Date: 20180711
  Serious: No
  Sender: FDA-Public Use
  Company Number: CO-REGENERON PHARMACEUTICALS, INC.-2018-19894

PATIENT

DRUGS (7)
  1. EYLEA [Suspect]
     Active Substance: AFLIBERCEPT
     Dosage: 2.0 MG, RIGHT EYE
     Route: 031
     Dates: start: 20151102, end: 20151102
  2. EYLEA [Suspect]
     Active Substance: AFLIBERCEPT
     Dosage: 2.0 MG, RIGHT EYE
     Route: 031
     Dates: start: 20150502, end: 20150502
  3. EYLEA [Suspect]
     Active Substance: AFLIBERCEPT
     Dosage: 2.0 MG, RIGHT EYE
     Route: 031
     Dates: start: 20160102, end: 20160102
  4. EYLEA [Suspect]
     Active Substance: AFLIBERCEPT
     Dosage: 2.0 MG, RIGHT EYE
     Route: 031
     Dates: start: 20150402, end: 20150402
  5. EYLEA [Suspect]
     Active Substance: AFLIBERCEPT
     Dosage: 2.0 MG, RIGHT EYE
     Route: 031
     Dates: start: 20180531, end: 20180531
  6. EYLEA [Suspect]
     Active Substance: AFLIBERCEPT
     Indication: DIABETIC RETINAL OEDEMA
     Dosage: 2.0 MG, RIGHT EYE
     Route: 031
     Dates: start: 20150302, end: 20150302
  7. EYLEA [Suspect]
     Active Substance: AFLIBERCEPT
     Dosage: 2.0 MG, RIGHT EYE
     Route: 031
     Dates: start: 20150702, end: 20150702

REACTIONS (1)
  - Inappropriate schedule of drug administration [Not Recovered/Not Resolved]
